FAERS Safety Report 6203711-0 (Version None)
Quarter: 2009Q2

REPORT INFORMATION
  Report Type: 
  Country: None (occurrence: None)
  Receive Date: 20090527
  Receipt Date: 20090518
  Transmission Date: 20091009
  Serious: Yes (Other)
  Sender: FDA-Public Use
  Company Number: BR-AVENTIS-200915214GDDC

PATIENT
  Age: 80 Year
  Sex: Female
  Weight: 58 kg

DRUGS (5)
  1. LANTUS [Suspect]
     Route: 058
  2. LANTUS [Suspect]
     Route: 058
  3. OPTIPEN (INSULIN PUMP) [Suspect]
  4. ALL OTHER THERAPEUTIC PRODUCTS [Suspect]
     Indication: PANCREATIC CARCINOMA
  5. ANTIBIOTICS [Concomitant]

REACTIONS (7)
  - AMNESIA [None]
  - CEREBROVASCULAR ACCIDENT [None]
  - CONFUSIONAL STATE [None]
  - HEPATIC FUNCTION ABNORMAL [None]
  - HYPERGLYCAEMIA [None]
  - PANCREATIC CARCINOMA [None]
  - RENAL DISORDER [None]
